FAERS Safety Report 26023971 (Version 1)
Quarter: 2025Q4

REPORT INFORMATION
  Report Type: Report from Study
  Country: US (occurrence: US)
  Receive Date: 20251111
  Receipt Date: 20251111
  Transmission Date: 20260117
  Serious: Yes (Other)
  Sender: ABBVIE
  Company Number: US-ABBVIE-6424427

PATIENT
  Sex: Female

DRUGS (1)
  1. HUMIRA [Suspect]
     Active Substance: ADALIMUMAB
     Indication: Crohn^s disease
     Route: 058
     Dates: start: 20150311

REACTIONS (5)
  - Benign gastric neoplasm [Recovering/Resolving]
  - Crohn^s disease [Unknown]
  - Large intestinal stenosis [Unknown]
  - Pain [Unknown]
  - Choking sensation [Unknown]
